FAERS Safety Report 11735325 (Version 6)
Quarter: 2016Q2

REPORT INFORMATION
  Report Type: Report from Study
  Country: CZ (occurrence: CZ)
  Receive Date: 20151113
  Receipt Date: 20160613
  Transmission Date: 20160815
  Serious: Yes (Death, Hospitalization, Other)
  Sender: FDA-Public Use
  Company Number: PHHO2015CZ016215

PATIENT
  Age: 71 Year
  Sex: Female
  Weight: 63 kg

DRUGS (34)
  1. KALINORM [Concomitant]
     Indication: PROPHYLAXIS
     Dosage: 1 G, BID
     Route: 048
     Dates: start: 20150825, end: 20150826
  2. FURUSEMID FORTE [Concomitant]
     Dosage: 20 MG, BID
     Route: 042
     Dates: start: 20150829, end: 20150831
  3. HELICID [Concomitant]
     Indication: PROPHYLAXIS AGAINST GASTROINTESTINAL ULCER
     Dosage: 20 MG, BID
     Route: 048
     Dates: start: 20150823, end: 20150903
  4. MAGNESIUM SULFATE. [Concomitant]
     Active Substance: MAGNESIUM SULFATE
     Indication: SUPPORTIVE CARE
     Dosage: 20 ML, PRN
     Route: 042
     Dates: start: 20150816, end: 20150831
  5. NATRIUM CHLORIDUM [Concomitant]
     Dosage: 1 DF, OT
     Route: 042
     Dates: start: 20150902, end: 20150902
  6. ELTROMBOPAG [Suspect]
     Active Substance: ELTROMBOPAG
     Indication: MYELODYSPLASTIC SYNDROME
     Dosage: CODE NOT BROKEN
     Route: 048
     Dates: start: 20150224, end: 20150831
  7. FURUSEMID FORTE [Concomitant]
     Dosage: 1 ML/HR, OT
     Route: 042
     Dates: start: 20150831, end: 20150901
  8. HUMULIN R [Concomitant]
     Active Substance: INSULIN HUMAN
     Dosage: 20 U, ONCE/SINGLE
     Route: 042
     Dates: start: 20150903, end: 20150904
  9. SODIUM CHLORIDE. [Concomitant]
     Active Substance: SODIUM CHLORIDE
     Indication: FLUID REPLACEMENT
     Dosage: 1 DF, OT
     Route: 042
     Dates: start: 20150902, end: 20150902
  10. DITHIADEN [Concomitant]
     Active Substance: BISULEPIN
     Dosage: 1 DF, ONCE/SINGLE
     Route: 042
     Dates: start: 20150825, end: 20150825
  11. COMPARATOR AZACITIDINE [Suspect]
     Active Substance: AZACITIDINE
     Indication: MYELODYSPLASTIC SYNDROME
     Dosage: 75 MG/M2, CYCLIC
     Route: 058
     Dates: start: 20150224
  12. FURUSEMID FORTE [Concomitant]
     Indication: PNEUMONIA
     Dosage: 20 MG, QD
     Route: 042
     Dates: start: 20150824, end: 20150828
  13. AFITEN [Concomitant]
     Indication: HYPERTENSION
     Dosage: 5 MG, QD
     Route: 048
     Dates: start: 20150902, end: 20150902
  14. HUMULIN R [Concomitant]
     Active Substance: INSULIN HUMAN
     Indication: SUPPORTIVE CARE
     Dosage: 10 U, ONCE/SINGLE
     Route: 042
     Dates: start: 20150827, end: 20150828
  15. DEGAN [Concomitant]
     Active Substance: METOCLOPRAMIDE HYDROCHLORIDE
     Indication: PROPHYLAXIS OF NAUSEA AND VOMITING
     Dosage: 1 DF, QD
     Route: 042
     Dates: start: 20150819, end: 20150819
  16. SALINE [Concomitant]
     Active Substance: SODIUM CHLORIDE
     Indication: SUPPORTIVE CARE
     Dosage: 100 ML, PRN
     Route: 042
     Dates: start: 20150816
  17. TRAMAL [Concomitant]
     Active Substance: TRAMADOL
     Indication: PNEUMONIA
     Dosage: 50 MG, PRN
     Route: 042
     Dates: start: 20150901, end: 20150902
  18. KALIUM CHLORID [Concomitant]
     Dosage: 40 ML, PRN
     Route: 042
  19. HUMULIN R [Concomitant]
     Active Substance: INSULIN HUMAN
     Dosage: 25 U, ONCE/SINGLE
     Route: 042
     Dates: start: 20150829, end: 20150902
  20. TRAMAL [Concomitant]
     Active Substance: TRAMADOL
     Indication: SUPPORTIVE CARE
  21. GLUCOSE [Concomitant]
     Active Substance: DEXTROSE
     Indication: SUPPORTIVE CARE
     Dosage: 500 ML, ONCE/SINGLE
     Route: 042
     Dates: start: 20150902
  22. DITHIADEN [Concomitant]
     Active Substance: BISULEPIN
     Indication: PREMEDICATION
     Dosage: 1 DF, ONCE/SINGLE
     Route: 042
     Dates: start: 20150821, end: 20150821
  23. KALIUM CHLORID [Concomitant]
     Indication: SUPPLEMENTATION THERAPY
     Dosage: 40 ML, PRN
     Route: 042
     Dates: start: 20150817
  24. KALIUM CHLORID [Concomitant]
     Dosage: 80 MG, QD
     Route: 042
     Dates: start: 20150818, end: 20150818
  25. OLIMEL [Concomitant]
     Active Substance: AMINO ACIDS\DEXTROSE\SOYBEAN OIL
     Indication: SUPPORTIVE CARE
  26. HYDROCORTISONE. [Concomitant]
     Active Substance: HYDROCORTISONE
     Indication: PREMEDICATION
     Dosage: 100 MG, PRN
     Route: 042
     Dates: start: 20150822
  27. TRACUTIL [Concomitant]
     Indication: SUPPORTIVE CARE
     Dosage: 1 DF, QD
     Route: 042
     Dates: start: 20150826, end: 20150904
  28. NATRIUM CHLORIDUM [Concomitant]
     Indication: SUPPORTIVE CARE
     Dosage: 100 ML, PRN
     Route: 042
     Dates: start: 20150816
  29. CERNEVIT [Concomitant]
     Active Substance: VITAMINS
     Indication: SUPPLEMENTATION THERAPY
     Dosage: 1 DF, QD
     Route: 042
     Dates: start: 20150826, end: 20150904
  30. CERNEVIT [Concomitant]
     Active Substance: VITAMINS
     Indication: SUPPORTIVE CARE
  31. OLIMEL [Concomitant]
     Active Substance: AMINO ACIDS\DEXTROSE\SOYBEAN OIL
     Indication: SUPPLEMENTATION THERAPY
     Dosage: 1000 ML, QD
     Route: 042
     Dates: start: 20150826, end: 20150904
  32. TAZOCIN [Concomitant]
     Active Substance: PIPERACILLIN SODIUM\TAZOBACTAM SODIUM
     Indication: INFECTION PROPHYLAXIS
     Dosage: 1 DF, Q6H
     Route: 042
     Dates: start: 20150816, end: 20150817
  33. CODEINE [Concomitant]
     Active Substance: CODEINE
     Indication: PNEUMONIA
     Dosage: 1 DF, PRN
     Route: 048
     Dates: start: 20150828, end: 20150904
  34. SALINE [Concomitant]
     Active Substance: SODIUM CHLORIDE
     Dosage: 500 ML, QD
     Route: 042
     Dates: start: 20150902, end: 20150902

REACTIONS (7)
  - Second primary malignancy [Recovered/Resolved with Sequelae]
  - Pneumonia [Fatal]
  - Pyrexia [Fatal]
  - Diarrhoea [Recovered/Resolved]
  - Dehydration [Fatal]
  - Pulmonary embolism [Fatal]
  - Renal neoplasm [Recovered/Resolved with Sequelae]

NARRATIVE: CASE EVENT DATE: 20150816
